FAERS Safety Report 4915793-4 (Version None)
Quarter: 2006Q1

REPORT INFORMATION
  Report Type: 
  Country: None (occurrence: None)
  Receive Date: 20060214
  Receipt Date: 20060126
  Transmission Date: 20060701
  Serious: Yes (Other)
  Sender: FDA-Public Use
  Company Number: US200601004714

PATIENT
  Age: 65 Year
  Sex: Male

DRUGS (1)
  1. HUMALOG [Suspect]
     Indication: DIABETES MELLITUS
     Dates: start: 19940101

REACTIONS (5)
  - CIRCUMSTANCE OR INFORMATION CAPABLE OF LEADING TO MEDICATION ERROR [None]
  - MACULAR HOLE [None]
  - MEDICAL DEVICE COMPLICATION [None]
  - PHARMACEUTICAL PRODUCT COMPLAINT [None]
  - VISUAL ACUITY REDUCED [None]
